FAERS Safety Report 5002907-3 (Version None)
Quarter: 2006Q2

REPORT INFORMATION
  Report Type: 
  Country: None (occurrence: None)
  Receive Date: 20060512
  Receipt Date: 20060428
  Transmission Date: 20061013
  Serious: Yes (Death, Other)
  Sender: FDA-Public Use
  Company Number: US200604000535

PATIENT
  Age: 68 Year
  Sex: Female

DRUGS (1)
  1. XIGRIS [Suspect]
     Indication: SEPSIS
     Dates: start: 20060301

REACTIONS (2)
  - MULTI-ORGAN FAILURE [None]
  - POST PROCEDURAL HAEMORRHAGE [None]
